FAERS Safety Report 7393087-8 (Version None)
Quarter: 2011Q2

REPORT INFORMATION
  Report Type: 
  Country: None (occurrence: None)
  Receive Date: 20110404
  Receipt Date: 20110328
  Transmission Date: 20111010
  Serious: Yes (Hospitalization)
  Sender: FDA-Public Use
  Company Number: US-US-EMD SERONO, INC.-7050751

PATIENT
  Sex: Female
  Weight: 67 kg

DRUGS (3)
  1. VALIUM [Concomitant]
  2. ATIVAN [Concomitant]
  3. REBIF [Suspect]
     Indication: MULTIPLE SCLEROSIS
     Route: 058
     Dates: start: 20090212

REACTIONS (5)
  - SPINAL FUSION SURGERY [None]
  - TREMOR [None]
  - SLEEP DISORDER [None]
  - FALL [None]
  - PAIN [None]
